FAERS Safety Report 8580477-0 (Version None)
Quarter: 2012Q3

REPORT INFORMATION
  Report Type: 
  Country: None (occurrence: None)
  Receive Date: 20120808
  Receipt Date: 20120731
  Transmission Date: 20120928
  Serious: No
  Sender: FDA-Public Use
  Company Number: US-ASTRAZENECA-2012SE54578

PATIENT
  Age: 75 Year
  Sex: Female
  Weight: 63.5 kg

DRUGS (4)
  1. CRESTOR [Suspect]
     Indication: BLOOD CHOLESTEROL INCREASED
     Route: 048
     Dates: end: 20120201
  2. VITAMIN TAB [Concomitant]
  3. COQ10 [Concomitant]
  4. CRESTOR [Suspect]
     Route: 048
     Dates: start: 20120601, end: 20120727

REACTIONS (6)
  - WEIGHT INCREASED [None]
  - LIMB DISCOMFORT [None]
  - BURNING SENSATION [None]
  - BLOOD BILIRUBIN INCREASED [None]
  - HYPOAESTHESIA [None]
  - MUSCULOSKELETAL STIFFNESS [None]
